FAERS Safety Report 8760652 (Version 3)
Quarter: 2013Q1

REPORT INFORMATION
  Report Type: Spontaneous
  Country: US (occurrence: US)
  Receive Date: 20120830
  Receipt Date: 20130220
  Transmission Date: 20140127
  Serious: Yes (Hospitalization, Disabling, Other)
  Sender: FDA-Public Use
  Company Number: US-009507513-1108USA00315

PATIENT
  Sex: Female
  Weight: 78.47 kg

DRUGS (12)
  1. FOSAMAX [Suspect]
     Indication: OSTEOPENIA
     Dosage: 10 MG, QD
     Route: 048
     Dates: start: 19980803, end: 20010416
  2. FOSAMAX [Suspect]
     Indication: OSTEOPOROSIS
     Dosage: 70 MG, QW
     Route: 048
     Dates: start: 20010417
  3. PREDNISONE [Suspect]
     Indication: POLYMYALGIA RHEUMATICA
     Dosage: 7-80
     Route: 048
     Dates: start: 1991
  4. RECLAST [Suspect]
     Dates: start: 2008, end: 2010
  5. OXYCONTIN [Concomitant]
     Indication: BACK PAIN
  6. OXYCODONE [Concomitant]
     Indication: BACK PAIN
  7. TYLENOL [Concomitant]
     Indication: BACK PAIN
  8. ATREXEL [Concomitant]
     Indication: POLYMYALGIA RHEUMATICA
  9. HEMP [Concomitant]
     Indication: BACK PAIN
     Dates: start: 20090615
  10. MK-9384 [Concomitant]
     Dosage: 50 MG, PRN
  11. VICODIN [Concomitant]
     Dosage: UNK UNK, PRN
  12. ZOCOR [Concomitant]
     Route: 048

REACTIONS (151)
  - Internal fixation of fracture [Unknown]
  - Femur fracture [Unknown]
  - Fall [Unknown]
  - Radius fracture [Unknown]
  - Fall [Unknown]
  - Radius fracture [Unknown]
  - Foot fracture [Unknown]
  - Fall [Unknown]
  - Radius fracture [Unknown]
  - Wrist fracture [Unknown]
  - Intervertebral disc degeneration [Unknown]
  - Transient ischaemic attack [Unknown]
  - Psoriatic arthropathy [Unknown]
  - Neuralgia [Unknown]
  - Neuritis [Unknown]
  - Radiculitis [Unknown]
  - Wrist fracture [Unknown]
  - Rib fracture [Unknown]
  - Malignant melanoma [Unknown]
  - Hand fracture [Not Recovered/Not Resolved]
  - Syncope [Unknown]
  - Fall [Unknown]
  - Tibia fracture [Unknown]
  - Convulsion [Unknown]
  - Metatarsalgia [Unknown]
  - Acquired claw toe [Unknown]
  - Foot deformity [Unknown]
  - Device failure [Unknown]
  - Device failure [Unknown]
  - Pain in extremity [Unknown]
  - Foot fracture [Recovering/Resolving]
  - Muscle strain [Unknown]
  - Foot deformity [Unknown]
  - Haemangioma [Unknown]
  - Intervertebral disc protrusion [Unknown]
  - Spinal column stenosis [Unknown]
  - Synovial cyst [Unknown]
  - Humerus fracture [Unknown]
  - Rib fracture [Unknown]
  - Splenic artery aneurysm [Unknown]
  - Pulmonary mass [Unknown]
  - Pancreatic mass [Unknown]
  - Osteoarthritis [Unknown]
  - Musculoskeletal chest pain [Unknown]
  - Contusion [Unknown]
  - Fall [Unknown]
  - Osteoarthritis [Unknown]
  - Tendon disorder [Unknown]
  - Lung infection [Unknown]
  - Hepatic cyst [Unknown]
  - Thyroid neoplasm [Unknown]
  - Migraine [Unknown]
  - Nausea [Unknown]
  - Sjogren^s syndrome [Unknown]
  - Arthritis [Unknown]
  - Depression [Unknown]
  - Insomnia [Unknown]
  - Stress [Unknown]
  - Anxiety [Unknown]
  - Weight decreased [Unknown]
  - Heart rate increased [Unknown]
  - Labile hypertension [Unknown]
  - Cardiovascular disorder [Unknown]
  - Metabolic syndrome [Unknown]
  - Dupuytren^s contracture [Unknown]
  - Pain [Unknown]
  - Muscle tightness [Unknown]
  - Hyperglycaemia [Unknown]
  - Anaemia postoperative [Recovering/Resolving]
  - Hyperparathyroidism primary [Unknown]
  - Blood calcium increased [Unknown]
  - Renal failure chronic [Not Recovered/Not Resolved]
  - Cardiac murmur [Unknown]
  - Stress fracture [Unknown]
  - Vertigo [Unknown]
  - Labyrinthitis [Unknown]
  - Vestibular neuronitis [Unknown]
  - Rhinitis allergic [Unknown]
  - Stress fracture [Unknown]
  - Foot deformity [Unknown]
  - Hiatus hernia [Unknown]
  - Gastrooesophageal reflux disease [Unknown]
  - Rhinitis [Unknown]
  - Cough [Unknown]
  - Restless legs syndrome [Unknown]
  - Sinus disorder [Unknown]
  - Adrenal insufficiency [Unknown]
  - Urinary tract infection [Unknown]
  - Limb injury [Unknown]
  - Dyslipidaemia [Unknown]
  - Alanine aminotransferase increased [Unknown]
  - Back pain [Unknown]
  - Bunion [Unknown]
  - Fall [Unknown]
  - Cyst [Unknown]
  - Nerve root injury lumbar [Unknown]
  - Adverse drug reaction [Unknown]
  - Dizziness [Unknown]
  - Balance disorder [Unknown]
  - Arthropathy [Unknown]
  - Osteoarthritis [Unknown]
  - Anaemia [Recovered/Resolved]
  - Memory impairment [Unknown]
  - Hyperhidrosis [Unknown]
  - Malignant melanoma [Unknown]
  - Incorrect dose administered [Unknown]
  - Drug dependence [Unknown]
  - Urinary incontinence [Unknown]
  - Ankle fracture [Unknown]
  - Constipation [Not Recovered/Not Resolved]
  - Somnolence [Unknown]
  - Dehydration [Unknown]
  - Acute prerenal failure [Unknown]
  - Hyperglycaemia [Unknown]
  - Cauda equina syndrome [Unknown]
  - Colon adenoma [Unknown]
  - Haemorrhoids [Unknown]
  - Balance disorder [Unknown]
  - Dizziness [Unknown]
  - Cushing^s syndrome [Unknown]
  - Connective tissue disorder [Unknown]
  - Arthralgia [Unknown]
  - Fractured sacrum [Unknown]
  - Drug ineffective [Unknown]
  - Sedation [Unknown]
  - Dermatitis allergic [Unknown]
  - Piriformis syndrome [Unknown]
  - Local swelling [Unknown]
  - Spinal osteoarthritis [Unknown]
  - Intervertebral disc protrusion [Unknown]
  - Skin ulcer [Recovered/Resolved]
  - Lymphocyte count increased [Unknown]
  - Monocyte count increased [Unknown]
  - Joint ankylosis [Unknown]
  - Syncope [Unknown]
  - Overdose [Unknown]
  - Cystitis escherichia [Unknown]
  - Nausea [Unknown]
  - Fibula fracture [Unknown]
  - Fall [Unknown]
  - Presyncope [Unknown]
  - Hypokalaemia [Unknown]
  - Leukocytosis [Unknown]
  - Temporomandibular joint syndrome [Unknown]
  - Oral disorder [Unknown]
  - Tooth loss [Unknown]
  - Leukoplakia [Unknown]
  - Tongue operation [Unknown]
  - Skin neoplasm excision [Unknown]
  - Tenotomy [Unknown]
  - Oesophageal spasm [Unknown]
